FAERS Safety Report 7979554-4 (Version None)
Quarter: 2011Q4

REPORT INFORMATION
  Report Type: 
  Country: None (occurrence: None)
  Receive Date: 20111209
  Receipt Date: 20111128
  Transmission Date: 20120403
  Serious: Yes (Hospitalization)
  Sender: FDA-Public Use
  Company Number: WAES 1111USA03859

PATIENT
  Age: 47 Year
  Sex: Female

DRUGS (5)
  1. COUMADIN [Concomitant]
  2. KLONOPIN [Concomitant]
  3. POLYETHYLENE GLYCOL [Suspect]
     Indication: BREAST CANCER METASTATIC
     Dosage: 15.5 MG/WKY/IV
     Route: 042
     Dates: start: 20100318, end: 20111024
  4. INVANZ [Suspect]
     Indication: PROPHYLAXIS
     Dosage: /Q12H/IV
     Route: 042
     Dates: start: 20110915
  5. CUBICIN [Suspect]
     Indication: PROPHYLAXIS
     Dosage: /Q12H/IV
     Route: 042
     Dates: start: 20110915

REACTIONS (3)
  - WOUND INFECTION [None]
  - ENTEROCOCCAL INFECTION [None]
  - STAPHYLOCOCCAL INFECTION [None]
